FAERS Safety Report 26165439 (Version 1)
Quarter: 2025Q4

REPORT INFORMATION
  Report Type: Spontaneous
  Country: US (occurrence: US)
  Receive Date: 20251216
  Receipt Date: 20251216
  Transmission Date: 20260117
  Serious: No
  Sender: ROCHE
  Company Number: US-ROCHE-10000458351

PATIENT
  Sex: Female
  Weight: 72.59 kg

DRUGS (1)
  1. OCREVUS [Suspect]
     Active Substance: OCRELIZUMAB
     Indication: Multiple sclerosis
     Route: 042
     Dates: start: 202303

REACTIONS (3)
  - Vascular access site extravasation [Not Recovered/Not Resolved]
  - Off label use [Unknown]
  - Vascular access site swelling [Unknown]

NARRATIVE: CASE EVENT DATE: 20251210
